FAERS Safety Report 8995178 (Version 1)
Quarter: 2012Q4

REPORT INFORMATION
  Report Type: Spontaneous
  Country: US (occurrence: None)
  Receive Date: 20121228
  Receipt Date: 20121228
  Transmission Date: 20130627
  Serious: Yes (Life-Threatening)
  Sender: FDA-Public Use
  Company Number: None

PATIENT
  Age: 50 Year
  Sex: Male
  Weight: 83.2 kg

DRUGS (1)
  1. REMIFENTANIL [Suspect]
     Indication: SURGERY
     Dates: start: 20121017, end: 20121017

REACTIONS (1)
  - Cardiac arrest [None]
